FAERS Safety Report 9675577 (Version 2)
Quarter: 2013Q4

REPORT INFORMATION
  Report Type: Spontaneous
  Country: DE (occurrence: DE)
  Receive Date: 20131107
  Receipt Date: 20131107
  Transmission Date: 20140711
  Serious: Yes (Other)
  Sender: FDA-Public Use
  Company Number: DE-SA-2013SA105838

PATIENT
  Age: 38 Year
  Sex: Female
  Weight: 85 kg

DRUGS (3)
  1. AUBAGIO [Suspect]
     Indication: MULTIPLE SCLEROSIS
     Route: 048
     Dates: start: 20131015
  2. MARCUMAR [Concomitant]
     Indication: ATRIAL SEPTAL DEFECT
     Dosage: BASED ON INR
     Route: 048
     Dates: start: 20111121
  3. METOPROLOL [Concomitant]
     Indication: PRODUCT USED FOR UNKNOWN INDICATION
     Route: 048
     Dates: start: 20111121

REACTIONS (4)
  - Sympathetic posterior cervical syndrome [Recovered/Resolved]
  - Headache [Recovered/Resolved]
  - Dizziness [Recovered/Resolved]
  - Visual impairment [Recovered/Resolved]
